FAERS Safety Report 10525440 (Version 1)
Quarter: 2014Q4

REPORT INFORMATION
  Report Type: Spontaneous
  Country: JP (occurrence: None)
  Receive Date: 20141015
  Receipt Date: 20141015
  Transmission Date: 20150528
  Serious: Yes (Hospitalization)
  Sender: FDA-Public Use
  Company Number: AE-SPE-2014-030

PATIENT
  Age: 4 Year
  Sex: Male

DRUGS (2)
  1. CDTR-PI (CEFDITOREN PIVOXIL) [Suspect]
     Active Substance: CEFDITOREN PIVOXIL
     Route: 048
  2. PARACETAMOL (ACETAMINOPHEN) [Suspect]
     Active Substance: ACETAMINOPHEN
     Dosage: 7 DAYS, SUPPOSITORY

REACTIONS (3)
  - Thrombocytopenia [None]
  - Neutropenia [None]
  - Drug reaction with eosinophilia and systemic symptoms [None]
